FAERS Safety Report 9106278 (Version 1)
Quarter: 2013Q1

REPORT INFORMATION
  Report Type: Report from Study
  Country: GB (occurrence: GB)
  Receive Date: 20130221
  Receipt Date: 20130221
  Transmission Date: 20140127
  Serious: Yes (Hospitalization, Other)
  Sender: FDA-Public Use
  Company Number: GB-ROCHE-1192610

PATIENT
  Age: 91 Year
  Sex: Female
  Weight: 56 kg

DRUGS (8)
  1. RANIBIZUMAB [Suspect]
     Indication: AGE-RELATED MACULAR DEGENERATION
     Route: 050
     Dates: start: 20090710
  2. RANIBIZUMAB [Suspect]
     Dosage: LAST DOSE PRIOR TO EVENT WAS ON 12/NOV/2012
     Route: 050
     Dates: start: 20121112
  3. FORMOTEROL FUMARATE [Concomitant]
     Indication: CHRONIC OBSTRUCTIVE PULMONARY DISEASE
     Route: 065
     Dates: start: 200806
  4. BISOPROLOL [Concomitant]
     Indication: HYPERTENSION
  5. IPRATROPIUM BROMIDE [Concomitant]
     Indication: CHRONIC OBSTRUCTIVE PULMONARY DISEASE
  6. QVAR [Concomitant]
     Indication: CHRONIC OBSTRUCTIVE PULMONARY DISEASE
     Route: 065
     Dates: start: 200806
  7. RAMIPRIL [Concomitant]
     Indication: HYPERTENSION
     Route: 065
     Dates: start: 2007
  8. SIMVASTATIN [Concomitant]
     Indication: MYOCARDIAL ISCHAEMIA

REACTIONS (2)
  - Acute coronary syndrome [Recovered/Resolved]
  - Lung consolidation [Unknown]
